FAERS Safety Report 6557935-3 (Version None)
Quarter: 2010Q1

REPORT INFORMATION
  Report Type: 
  Country: None (occurrence: None)
  Receive Date: 20100127
  Receipt Date: 20100127
  Transmission Date: 20100710
  Serious: Yes (Hospitalization)
  Sender: FDA-Public Use
  Company Number: None

PATIENT
  Age: 53 Year
  Sex: Female
  Weight: 65.2 kg

DRUGS (3)
  1. ADVIL [Suspect]
     Indication: BACK PAIN
     Dosage: 6-8 TABLETS QDAY PO RECENT
     Route: 048
  2. ADVAIR DISKUS 100/50 [Concomitant]
  3. TYLENOL-500 [Concomitant]

REACTIONS (3)
  - DIZZINESS [None]
  - FAECES DISCOLOURED [None]
  - OESOPHAGEAL ULCER [None]
